FAERS Safety Report 21917448 (Version 1)
Quarter: 2023Q1

REPORT INFORMATION
  Report Type: Report from Study
  Country: US (occurrence: US)
  Receive Date: 20230126
  Receipt Date: 20230126
  Transmission Date: 20230418
  Serious: Yes (Death, Other)
  Sender: FDA-Public Use
  Company Number: US-ACADIA PHARMACEUTICALS INC.-ACA-2023-PIM-000019

PATIENT
  Sex: Male

DRUGS (12)
  1. NUPLAZID [Suspect]
     Active Substance: PIMAVANSERIN TARTRATE
     Indication: Parkinson^s disease
     Dosage: 34 MILLIGRAM, QD
     Route: 048
     Dates: start: 20221129, end: 20221211
  2. NEUPRO [Concomitant]
     Active Substance: ROTIGOTINE
     Dosage: 2MG/24 HR
  3. TRAVOPROST [Concomitant]
     Active Substance: TRAVOPROST
     Dosage: 0.004%
  4. LISINOPRIL [Concomitant]
     Active Substance: LISINOPRIL
     Dosage: 5 MILLIGRAM
  5. TRAZODONE [Concomitant]
     Active Substance: TRAZODONE HYDROCHLORIDE
     Dosage: 50 MILLIGRAM
  6. NITROGLYCERIN [Concomitant]
     Active Substance: NITROGLYCERIN
     Dosage: 0.4 MG
  7. CARBIDOPA\LEVODOPA [Concomitant]
     Active Substance: CARBIDOPA\LEVODOPA
     Dosage: 25-100 MG
  8. PRASUGREL [PRASUGREL HYDROBROMIDE] [Concomitant]
     Dosage: 10 MILLIGRAM
  9. OMEPRAZOLE [Concomitant]
     Active Substance: OMEPRAZOLE
     Dosage: 40 MILLIGRAM
  10. PRAVASTATIN [Concomitant]
     Active Substance: PRAVASTATIN
     Dosage: 10 MILLIGRAM
  11. TOUJEO MAX [Concomitant]
     Active Substance: INSULIN GLARGINE
     Dosage: 300 U/ML
  12. HUMALOG [Concomitant]
     Active Substance: INSULIN LISPRO
     Dosage: 100 U/ML KWIK PEN

REACTIONS (1)
  - Parkinson^s disease [Recovered/Resolved]
